FAERS Safety Report 17063307 (Version 2)
Quarter: 2020Q1

REPORT INFORMATION
  Report Type: Spontaneous
  Country: US (occurrence: US)
  Receive Date: 20191122
  Receipt Date: 20200207
  Transmission Date: 20200409
  Serious: Yes (Other)
  Sender: FDA-Public Use
  Company Number: US-HORIZON-PEN-PRE-0971-2019

PATIENT
  Age: 63 Year
  Sex: Female

DRUGS (5)
  1. PREDNISONE. [Suspect]
     Active Substance: PREDNISONE
  2. CELEBREX [Concomitant]
     Active Substance: CELECOXIB
  3. SYNTHROID [Concomitant]
     Active Substance: LEVOTHYROXINE SODIUM
  4. IBURPROFEN [Concomitant]
  5. PENNSAID [Suspect]
     Active Substance: DICLOFENAC SODIUM
     Indication: OSTEOARTHRITIS
     Dates: end: 20191104

REACTIONS (5)
  - Therapy cessation [Recovered/Resolved]
  - Mobility decreased [Recovered/Resolved]
  - Arthropathy [Recovered/Resolved]
  - Unevaluable event [Unknown]
  - Deafness [Recovered/Resolved]

NARRATIVE: CASE EVENT DATE: 20191104
